FAERS Safety Report 25369306 (Version 1)
Quarter: 2025Q2

REPORT INFORMATION
  Report Type: Spontaneous
  Country: HN (occurrence: HN)
  Receive Date: 20250528
  Receipt Date: 20250528
  Transmission Date: 20250716
  Serious: Yes (Death)
  Sender: NOVARTIS
  Company Number: HN-002147023-NVSC2024HN088549

PATIENT
  Sex: Male

DRUGS (1)
  1. GLIVEC [Suspect]
     Active Substance: IMATINIB MESYLATE
     Indication: Gastrointestinal stromal tumour
     Dosage: 400 MG, QD ((1 X 400MG)
     Route: 065

REACTIONS (3)
  - Death [Fatal]
  - Ill-defined disorder [Unknown]
  - Off label use [Unknown]
